FAERS Safety Report 17019767 (Version 1)
Quarter: 2019Q4

REPORT INFORMATION
  Report Type: Spontaneous
  Country: US (occurrence: US)
  Receive Date: 20191112
  Receipt Date: 20191112
  Transmission Date: 20200122
  Serious: No
  Sender: FDA-Public Use
  Company Number: US-BTG-201900044

PATIENT
  Age: 44 Year
  Sex: Male

DRUGS (2)
  1. CROFAB [Suspect]
     Active Substance: CROTALIDAE POLYVALENT IMMUNE FAB (OVINE)
     Indication: SNAKE BITE
     Dosage: 6 VIALS
     Route: 065
  2. CROFAB [Suspect]
     Active Substance: CROTALIDAE POLYVALENT IMMUNE FAB (OVINE)
     Indication: SNAKE BITE
     Dosage: 4 VIALS
     Route: 065

REACTIONS (7)
  - Pain in extremity [Unknown]
  - Hypotension [Unknown]
  - Oedema [Unknown]
  - Urticaria [Unknown]
  - Thrombocytopenia [Recovered/Resolved]
  - Blister [Unknown]
  - Tenderness [Unknown]
